FAERS Safety Report 8186900-8 (Version None)
Quarter: 2012Q1

REPORT INFORMATION
  Report Type: 
  Country: None (occurrence: None)
  Receive Date: 20120306
  Receipt Date: 20120229
  Transmission Date: 20120608
  Serious: Yes (Hospitalization)
  Sender: FDA-Public Use
  Company Number: US-B.I. PHARMACEUTICALS,INC./RIDGEFIELD-2012-BP-03881BP

PATIENT
  Age: 66 Year
  Sex: Female

DRUGS (7)
  1. DILANTIN [Concomitant]
     Indication: CONVULSION
  2. PRADAXA [Suspect]
     Indication: ATRIAL FIBRILLATION
     Dosage: 300 MG
     Route: 048
     Dates: start: 20120126
  3. PHENOBARBITAL TAB [Concomitant]
     Indication: CONVULSION
  4. SYMBICORT [Concomitant]
     Indication: ASTHMA
  5. PREMPRO [Concomitant]
     Indication: HORMONE REPLACEMENT THERAPY
  6. PROAIR HFA [Concomitant]
     Indication: ASTHMA
  7. LEVOXYL [Concomitant]
     Indication: HYPOTHYROIDISM

REACTIONS (2)
  - DYSPNOEA [None]
  - CARDIAC FAILURE CONGESTIVE [None]
